FAERS Safety Report 5326803-7 (Version None)
Quarter: 2007Q2

REPORT INFORMATION
  Report Type: 
  Country: None (occurrence: None)
  Receive Date: 20070516
  Receipt Date: 20070509
  Transmission Date: 20071010
  Serious: Yes (Death, Other)
  Sender: FDA-Public Use
  Company Number: JP-PFIZER INC-2007038327

PATIENT
  Age: 62 Year
  Sex: Male

DRUGS (29)
  1. ATARAX [Suspect]
     Indication: DRUG USE FOR UNKNOWN INDICATION
  2. LENDORMIN [Concomitant]
  3. PRAVASTATIN [Concomitant]
     Route: 048
  4. HARNAL [Concomitant]
     Route: 048
  5. DIART [Concomitant]
     Route: 048
  6. URINORM [Concomitant]
     Route: 048
  7. GASTROM [Concomitant]
     Route: 048
  8. AM [Concomitant]
     Route: 048
  9. ASCOMP [Concomitant]
     Route: 048
  10. METHAPHYLLIN [Concomitant]
     Route: 048
  11. ROHYPNOL [Concomitant]
     Route: 048
  12. NEUOMIL [Concomitant]
     Route: 048
  13. OPYSTAN [Concomitant]
     Route: 042
     Dates: start: 20070424, end: 20070424
  14. LACTEC [Concomitant]
     Route: 042
     Dates: start: 20070424, end: 20070427
  15. PENTAGIN [Concomitant]
     Route: 042
     Dates: start: 20070424, end: 20070424
  16. BUSCOPAN [Concomitant]
     Route: 042
     Dates: start: 20070424, end: 20070424
  17. AMINO ACIDS/ELECTROLYTES/GLUCOSE/VITAMINS [Concomitant]
     Route: 042
     Dates: start: 20070424, end: 20070426
  18. SUBVITAN [Concomitant]
     Route: 042
     Dates: start: 20070424, end: 20070427
  19. PANSPORIN [Concomitant]
     Route: 042
     Dates: start: 20070425, end: 20070427
  20. DOPAMINE HCL [Concomitant]
     Route: 042
     Dates: start: 20070425, end: 20070425
  21. VITAMINS, OTHER COMBINATIONS [Concomitant]
     Route: 042
     Dates: start: 20070426, end: 20070427
  22. VOLTAREN [Concomitant]
     Route: 054
     Dates: start: 20070426, end: 20070426
  23. MYSLEE [Concomitant]
     Route: 048
  24. ASPARA K [Concomitant]
     Route: 042
     Dates: start: 20070426, end: 20070426
  25. HALOPERIDOL [Concomitant]
     Route: 030
     Dates: start: 20070427, end: 20070427
  26. CERCINE [Concomitant]
     Route: 042
     Dates: start: 20070427, end: 20070427
  27. BOSMIN [Concomitant]
     Route: 042
     Dates: start: 20070427, end: 20070427
  28. DOBUTREX [Concomitant]
     Route: 042
     Dates: start: 20070427, end: 20070427
  29. MEYLON [Concomitant]
     Route: 042
     Dates: start: 20070427, end: 20070427

REACTIONS (3)
  - ABNORMAL BEHAVIOUR [None]
  - COMPLETED SUICIDE [None]
  - PSYCHIATRIC SYMPTOM [None]
